FAERS Safety Report 6035570-3 (Version None)
Quarter: 2009Q1

REPORT INFORMATION
  Report Type: 
  Country: None (occurrence: None)
  Receive Date: 20090113
  Receipt Date: 20090102
  Transmission Date: 20090719
  Serious: Yes (Other)
  Sender: FDA-Public Use
  Company Number: US-ROCHE-606205

PATIENT
  Sex: Male
  Weight: 83.9 kg

DRUGS (2)
  1. CAPECITABINE [Suspect]
     Dosage: FORM: PILLS
     Route: 065
     Dates: start: 20080818, end: 20081101
  2. TAXOL [Concomitant]

REACTIONS (1)
  - DISEASE PROGRESSION [None]
